FAERS Safety Report 6631164-7 (Version None)
Quarter: 2010Q1

REPORT INFORMATION
  Report Type: 
  Country: None (occurrence: None)
  Receive Date: 20100309
  Receipt Date: 20100222
  Transmission Date: 20100710
  Serious: Yes (Hospitalization)
  Sender: FDA-Public Use
  Company Number: 230634J10USA

PATIENT
  Age: 19 Year
  Sex: Female

DRUGS (5)
  1. REBIF [Suspect]
     Indication: MULTIPLE SCLEROSIS
     Dosage: 22 MCG, 3 IN 1 WEEKS, SUBCUTANEOUS
     Route: 058
     Dates: start: 20091009
  2. LYRICA [Concomitant]
  3. BACLOFEN [Concomitant]
  4. KEPPRA [Concomitant]
  5. GABAPENTIN [Concomitant]

REACTIONS (12)
  - APHASIA [None]
  - BRONCHITIS [None]
  - CONDITION AGGRAVATED [None]
  - CONVULSION [None]
  - DYSKINESIA [None]
  - MEMORY IMPAIRMENT [None]
  - MULTIPLE SCLEROSIS [None]
  - PAIN IN EXTREMITY [None]
  - PNEUMONIA [None]
  - SKIN LACERATION [None]
  - STRESS [None]
  - SUICIDE ATTEMPT [None]
